FAERS Safety Report 7089195-1 (Version None)
Quarter: 2010Q4

REPORT INFORMATION
  Report Type: 
  Country: None (occurrence: None)
  Receive Date: 20101029
  Receipt Date: 20101019
  Transmission Date: 20110411
  Serious: Yes (Other)
  Sender: FDA-Public Use
  Company Number: 2009AL004576

PATIENT
  Age: 60 Year
  Sex: Female

DRUGS (7)
  1. SERTRALINE HYDROCHLORIDE [Suspect]
     Indication: DEPRESSED MOOD
     Dosage: PO
     Route: 048
     Dates: start: 20090216
  2. LEVOTHYROXINE SODIUM [Concomitant]
  3. OLMESARTAN MEDOXOMIL [Concomitant]
  4. ACETYLSALICYLIC ACID [Concomitant]
  5. INSULIN ISOPHNE PORCINE [Concomitant]
  6. MACROGOL [Concomitant]
  7. INSULIN [Concomitant]

REACTIONS (12)
  - ABNORMAL DREAMS [None]
  - AGITATION [None]
  - AMNESIA [None]
  - BLEPHAROSPASM [None]
  - DIZZINESS [None]
  - DYSPEPSIA [None]
  - EPILEPSY [None]
  - EYELID DISORDER [None]
  - GRAND MAL CONVULSION [None]
  - HEADACHE [None]
  - PARAESTHESIA [None]
  - SWOLLEN TONGUE [None]
